FAERS Safety Report 14855952 (Version 3)
Quarter: 2018Q3

REPORT INFORMATION
  Report Type: Spontaneous
  Country: US (occurrence: US)
  Receive Date: 20180507
  Receipt Date: 20180810
  Transmission Date: 20181010
  Serious: Yes (Disabling, Other)
  Sender: FDA-Public Use
  Company Number: US-REGENERON PHARMACEUTICALS, INC.-2018-22553

PATIENT

DRUGS (2)
  1. EYLEA [Suspect]
     Active Substance: AFLIBERCEPT
     Dosage: LAST DOSE
     Route: 031
     Dates: start: 20180418, end: 20180418
  2. EYLEA [Suspect]
     Active Substance: AFLIBERCEPT
     Indication: NEOVASCULAR AGE-RELATED MACULAR DEGENERATION
     Dosage: 2 UNITS, 0.1 CC, LEFT EYE FOR EVERY 12 WEEKS
     Route: 031
     Dates: start: 20180228

REACTIONS (2)
  - Non-infectious endophthalmitis [Recovered/Resolved]
  - Blindness unilateral [Not Recovered/Not Resolved]

NARRATIVE: CASE EVENT DATE: 20180424
